FAERS Safety Report 13509527 (Version 2)
Quarter: 2018Q1

REPORT INFORMATION
  Report Type: Spontaneous
  Country: US (occurrence: US)
  Receive Date: 20170503
  Receipt Date: 20180201
  Transmission Date: 20180508
  Serious: No
  Sender: FDA-Public Use
  Company Number: US-SA-2017SA036318

PATIENT
  Age: 66 Year
  Sex: Female

DRUGS (10)
  1. ALPRAZOLAM. [Concomitant]
     Active Substance: ALPRAZOLAM
     Dosage: STRENGTH: 0.5MG
  2. BENAZEPRIL [Concomitant]
     Active Substance: BENAZEPRIL HYDROCHLORIDE
     Dosage: STRENGTH: 40MG
  3. RANITIDINE. [Concomitant]
     Active Substance: RANITIDINE
     Dosage: 150MG
  4. PRALUENT [Suspect]
     Active Substance: ALIROCUMAB
     Indication: NICOTINE DEPENDENCE
     Route: 058
     Dates: start: 20160513
  5. CLOPIDOGREL [Concomitant]
     Active Substance: CLOPIDOGREL BISULFATE
     Dosage: STRENGTH;^ 75MG
  6. FUROSEMIDE. [Concomitant]
     Active Substance: FUROSEMIDE
     Dosage: STRENGTH: 20MG
  7. PANTOPRAZOLE [Concomitant]
     Active Substance: PANTOPRAZOLE
     Dosage: 20MG
  8. WELLBUTRIN [Concomitant]
     Active Substance: BUPROPION HYDROCHLORIDE
  9. ALIROCUMAB PREFILLED PEN [Suspect]
     Active Substance: ALIROCUMAB
     Indication: NICOTINE DEPENDENCE
     Dates: start: 20160513
  10. ZETIA [Concomitant]
     Active Substance: EZETIMIBE
     Dosage: STRENGTH:10MG

REACTIONS (3)
  - Drug dose omission [Unknown]
  - Dry skin [Recovered/Resolved]
  - Pruritus [Recovered/Resolved]
